FAERS Safety Report 17966469 (Version 3)
Quarter: 2020Q3

REPORT INFORMATION
  Report Type: Spontaneous
  Country: GB (occurrence: GB)
  Receive Date: 20200630
  Receipt Date: 20200721
  Transmission Date: 20201103
  Serious: Yes (Other)
  Sender: FDA-Public Use
  Company Number: NVSC2020GB175820

PATIENT
  Age: 45 Year
  Sex: Female

DRUGS (4)
  1. METHOTREXATE. [Suspect]
     Active Substance: METHOTREXATE
     Dosage: UNK
     Route: 065
  2. METHOTREXATE. [Suspect]
     Active Substance: METHOTREXATE
     Dosage: UNK
     Route: 065
  3. METHOTREXATE. [Suspect]
     Active Substance: METHOTREXATE
     Indication: PRODUCT USED FOR UNKNOWN INDICATION
     Dosage: UNK
     Route: 065
  4. ADALIMUMAB [Suspect]
     Active Substance: ADALIMUMAB
     Indication: PSORIATIC ARTHROPATHY
     Dosage: 40 MG, Q2W
     Route: 058
     Dates: start: 20191010

REACTIONS (12)
  - Ear infection [Unknown]
  - Tooth abscess [Unknown]
  - Visual impairment [Not Recovered/Not Resolved]
  - Ill-defined disorder [Unknown]
  - Frustration tolerance decreased [Unknown]
  - Infection [Not Recovered/Not Resolved]
  - Headache [Unknown]
  - Immunodeficiency [Unknown]
  - Ulcer [Unknown]
  - Furuncle [Unknown]
  - Depressed mood [Unknown]
  - Abscess oral [Unknown]
